FAERS Safety Report 14770715 (Version 1)
Quarter: 2018Q2

REPORT INFORMATION
  Report Type: Spontaneous
  Country: GB (occurrence: GB)
  Receive Date: 20180417
  Receipt Date: 20180417
  Transmission Date: 20180711
  Serious: Yes (Other)
  Sender: FDA-Public Use
  Company Number: GB-ALLERGAN-1821052US

PATIENT
  Age: 54 Year
  Sex: Female

DRUGS (2)
  1. QUININE [Concomitant]
     Active Substance: QUININE
     Indication: MUSCLE SPASMS
     Dosage: 300 MG, UNK
     Route: 065
  2. FLUOXETINE HCL UNK [Suspect]
     Active Substance: FLUOXETINE HYDROCHLORIDE
     Indication: MUSCLE SPASMS
     Dosage: UNK UNK, QD
     Route: 065

REACTIONS (2)
  - Off label use [Unknown]
  - Optic ischaemic neuropathy [Recovered/Resolved]
